FAERS Safety Report 15335084 (Version 2)
Quarter: 2018Q3

REPORT INFORMATION
  Report Type: Spontaneous
  Country: US (occurrence: US)
  Receive Date: 20180830
  Receipt Date: 20180904
  Transmission Date: 20181010
  Serious: Yes (Other)
  Sender: FDA-Public Use
  Company Number: US-PFIZER INC-2018345298

PATIENT
  Age: 57 Year
  Sex: Female

DRUGS (2)
  1. LIDOCAINE HCL [Suspect]
     Active Substance: LIDOCAINE HYDROCHLORIDE
     Indication: LOCAL ANAESTHESIA
     Dosage: 5 ML (TO BE ADMINISTERED OVER SEVEN MINUTES)
  2. LIDOCAINE HCL [Suspect]
     Active Substance: LIDOCAINE HYDROCHLORIDE
     Indication: LOCAL ANAESTHESIA
     Dosage: 0.5 ML, UNK
     Route: 058

REACTIONS (10)
  - Somnolence [Recovering/Resolving]
  - Wheezing [Recovering/Resolving]
  - Cyanosis [Recovering/Resolving]
  - Tachypnoea [Recovering/Resolving]
  - Agitation [Recovering/Resolving]
  - Tonic clonic movements [Recovering/Resolving]
  - Acute respiratory distress syndrome [Recovering/Resolving]
  - Anaphylactic reaction [Recovering/Resolving]
  - Accidental exposure to product [Recovering/Resolving]
  - Dyspnoea [Recovering/Resolving]
